FAERS Safety Report 7422187-9 (Version None)
Quarter: 2011Q2

REPORT INFORMATION
  Report Type: 
  Country: None (occurrence: None)
  Receive Date: 20110418
  Receipt Date: 20110403
  Transmission Date: 20111010
  Serious: Yes (Life-Threatening, Hospitalization, Disabling, Other)
  Sender: FDA-Public Use
  Company Number: US-BAYER-201013648NA

PATIENT
  Sex: Female
  Weight: 78 kg

DRUGS (6)
  1. AMBIEN [Concomitant]
     Indication: INSOMNIA
  2. YAZ [Suspect]
     Indication: ACNE
     Dosage: UNK
     Route: 048
     Dates: start: 20070101, end: 20080201
  3. YAZ [Suspect]
     Indication: PREMENSTRUAL SYNDROME
     Dosage: UNK
     Route: 048
     Dates: start: 20081001, end: 20081201
  4. COLLOIDAL SILVER [Concomitant]
     Dosage: UNK
     Dates: start: 20070101, end: 20080201
  5. YAZ [Suspect]
     Indication: MENSTRUATION IRREGULAR
  6. COLLOIDAL SILVER [Concomitant]
     Dosage: UNK

REACTIONS (5)
  - RENAL FAILURE [None]
  - PARALYSIS [None]
  - ORGAN FAILURE [None]
  - NEPHRITIC SYNDROME [None]
  - ABASIA [None]
